FAERS Safety Report 13954077 (Version 3)
Quarter: 2017Q4

REPORT INFORMATION
  Report Type: Spontaneous
  Country: AU (occurrence: AU)
  Receive Date: 20170911
  Receipt Date: 20171122
  Transmission Date: 20180320
  Serious: Yes (Other)
  Sender: FDA-Public Use
  Company Number: AU-MYLANLABS-2017M1056323

PATIENT
  Age: 10 Month

DRUGS (1)
  1. EPINEPHRINE MYLAN [Suspect]
     Active Substance: EPINEPHRINE
     Indication: UPPER AIRWAY OBSTRUCTION
     Dosage: UNK
     Route: 045

REACTIONS (1)
  - Drug ineffective [Unknown]
